FAERS Safety Report 13522263 (Version 1)
Quarter: 2017Q2

REPORT INFORMATION
  Report Type: Spontaneous
  Country: AR (occurrence: AR)
  Receive Date: 20170508
  Receipt Date: 20170508
  Transmission Date: 20170830
  Serious: Yes (Death)
  Sender: FDA-Public Use
  Company Number: AR-ACTELION-A-CH2016-146029

PATIENT
  Age: 81 Year
  Sex: Male

DRUGS (1)
  1. OPSUMIT [Suspect]
     Active Substance: MACITENTAN
     Indication: PULMONARY HYPERTENSION
     Dosage: UNK
     Route: 048
     Dates: start: 20160816, end: 20161122

REACTIONS (6)
  - Drug intolerance [Unknown]
  - Disease progression [Fatal]
  - Pulmonary hypertension [Fatal]
  - Gastrointestinal disorder [Unknown]
  - Cardiac failure [Fatal]
  - Diarrhoea [Unknown]
